FAERS Safety Report 5037152-9 (Version None)
Quarter: 2006Q2

REPORT INFORMATION
  Report Type: 
  Country: None (occurrence: None)
  Receive Date: 20060610
  Receipt Date: 20060331
  Transmission Date: 20061013
  Serious: No
  Sender: FDA-Public Use
  Company Number: 2006RL000125

PATIENT

DRUGS (3)
  1. OMACOR [Suspect]
     Indication: HYPERLIPIDAEMIA
     Dosage: 2 GM BID PO
     Route: 048
  2. AVANDIA [Concomitant]
  3. METFORMIN [Concomitant]

REACTIONS (1)
  - ASPARTATE AMINOTRANSFERASE INCREASED [None]
